FAERS Safety Report 8272496-9 (Version None)
Quarter: 2012Q2

REPORT INFORMATION
  Report Type: 
  Country: None (occurrence: None)
  Receive Date: 20120410
  Receipt Date: 20120405
  Transmission Date: 20120825
  Serious: No
  Sender: FDA-Public Use
  Company Number: US-PFIZER INC-2012086316

PATIENT
  Sex: Male

DRUGS (1)
  1. VIAGRA [Suspect]
     Dosage: UNK
     Route: 048

REACTIONS (4)
  - PENILE SWELLING [None]
  - OVERDOSE [None]
  - PENIS DISORDER [None]
  - SEMEN ANALYSIS ABNORMAL [None]
